FAERS Safety Report 10047093 (Version 4)
Quarter: 2014Q2

REPORT INFORMATION
  Report Type: Report from Study
  Country: US (occurrence: US)
  Receive Date: 20140331
  Receipt Date: 20140527
  Transmission Date: 20141212
  Serious: Yes (Other)
  Sender: FDA-Public Use
  Company Number: US-JNJFOC-20140311753

PATIENT
  Age: 88 Year
  Sex: Male
  Weight: 80.74 kg

DRUGS (2)
  1. ZYTIGA [Suspect]
     Indication: PROSTATE CANCER METASTATIC
     Dosage: 250MG FOUR TABLETS.
     Route: 048
     Dates: start: 20130528, end: 201312
  2. ZYTIGA [Suspect]
     Indication: PROSTATE CANCER METASTATIC
     Dosage: 250MG FOUR TABLETS.
     Route: 048
     Dates: end: 20140115

REACTIONS (3)
  - Malignant neoplasm progression [Not Recovered/Not Resolved]
  - Neck pain [Unknown]
  - Drug dose omission [Unknown]
